FAERS Safety Report 17249868 (Version 1)
Quarter: 2020Q1

REPORT INFORMATION
  Report Type: Spontaneous
  Country: US (occurrence: US)
  Receive Date: 20200109
  Receipt Date: 20200109
  Transmission Date: 20200409
  Serious: No
  Sender: FDA-Public Use
  Company Number: US-009507513-2001USA002408

PATIENT
  Age: 20 Year
  Sex: Female
  Weight: 82.09 kg

DRUGS (1)
  1. NEXPLANON [Suspect]
     Active Substance: ETONOGESTREL
     Indication: CONTRACEPTION
     Dosage: 1 ROD PER 3 YEARS, IN THE ARM (UNSPECIFIED)
     Route: 059
     Dates: start: 20191206, end: 20191219

REACTIONS (3)
  - Device expulsion [Recovered/Resolved]
  - Implant site erythema [Unknown]
  - Implant site discharge [Unknown]

NARRATIVE: CASE EVENT DATE: 20191219
